FAERS Safety Report 13043245 (Version 1)
Quarter: 2016Q4

REPORT INFORMATION
  Report Type: Spontaneous
  Country: GB (occurrence: GB)
  Receive Date: 20161219
  Receipt Date: 20161219
  Transmission Date: 20170207
  Serious: Yes (Other)
  Sender: FDA-Public Use
  Company Number: GB-JNJFOC-20161209973

PATIENT
  Sex: Male

DRUGS (24)
  1. PARACETAMOL [Suspect]
     Active Substance: ACETAMINOPHEN
     Indication: PAIN
     Route: 064
  2. PARACETAMOL [Suspect]
     Active Substance: ACETAMINOPHEN
     Indication: TOOTHACHE
     Route: 064
  3. PARACETAMOL [Suspect]
     Active Substance: ACETAMINOPHEN
     Indication: NASOPHARYNGITIS
     Route: 064
  4. PARACETAMOL [Suspect]
     Active Substance: ACETAMINOPHEN
     Indication: SCIATICA
     Route: 064
  5. PARACETAMOL [Suspect]
     Active Substance: ACETAMINOPHEN
     Indication: MYALGIA
     Route: 064
  6. PARACETAMOL [Suspect]
     Active Substance: ACETAMINOPHEN
     Indication: INFLUENZA
     Route: 064
  7. PARACETAMOL [Suspect]
     Active Substance: ACETAMINOPHEN
     Indication: PROCEDURAL PAIN
     Route: 064
  8. PARACETAMOL [Suspect]
     Active Substance: ACETAMINOPHEN
     Indication: EAR INFECTION
     Route: 064
  9. PARACETAMOL [Suspect]
     Active Substance: ACETAMINOPHEN
     Indication: PREMATURE LABOUR
     Route: 064
  10. PARACETAMOL [Suspect]
     Active Substance: ACETAMINOPHEN
     Indication: ANALGESIC THERAPY
     Route: 064
  11. PARACETAMOL [Suspect]
     Active Substance: ACETAMINOPHEN
     Indication: PYREXIA
     Route: 064
  12. PARACETAMOL [Suspect]
     Active Substance: ACETAMINOPHEN
     Indication: INFECTION
     Route: 064
  13. PARACETAMOL [Suspect]
     Active Substance: ACETAMINOPHEN
     Indication: SINUSITIS
     Route: 064
  14. PARACETAMOL [Suspect]
     Active Substance: ACETAMINOPHEN
     Indication: PHARYNGITIS
     Route: 064
  15. PARACETAMOL [Suspect]
     Active Substance: ACETAMINOPHEN
     Indication: PELVIC PAIN
     Route: 064
  16. PARACETAMOL [Suspect]
     Active Substance: ACETAMINOPHEN
     Indication: BACK PAIN
     Route: 064
  17. PARACETAMOL [Suspect]
     Active Substance: ACETAMINOPHEN
     Indication: MUSCULOSKELETAL PAIN
     Route: 064
  18. PARACETAMOL [Suspect]
     Active Substance: ACETAMINOPHEN
     Indication: MIGRAINE
     Route: 064
  19. PARACETAMOL [Suspect]
     Active Substance: ACETAMINOPHEN
     Indication: VARICOSE VEIN
     Route: 064
  20. PARACETAMOL [Suspect]
     Active Substance: ACETAMINOPHEN
     Indication: ABDOMINAL PAIN UPPER
     Route: 064
  21. PARACETAMOL [Suspect]
     Active Substance: ACETAMINOPHEN
     Indication: URINARY TRACT INFECTION
     Route: 064
  22. PARACETAMOL [Suspect]
     Active Substance: ACETAMINOPHEN
     Indication: UTERINE LEIOMYOMA
     Route: 064
  23. PARACETAMOL [Suspect]
     Active Substance: ACETAMINOPHEN
     Indication: POST-TRAUMATIC NECK SYNDROME
     Route: 064
  24. PARACETAMOL [Suspect]
     Active Substance: ACETAMINOPHEN
     Indication: HEADACHE
     Route: 064

REACTIONS (4)
  - Hypospadias [Unknown]
  - Cryptorchism [Unknown]
  - Perineal disorder [Unknown]
  - Foetal exposure during pregnancy [Unknown]
